FAERS Safety Report 19023874 (Version 1)
Quarter: 2021Q1

REPORT INFORMATION
  Report Type: Spontaneous
  Country: DK (occurrence: DK)
  Receive Date: 20210318
  Receipt Date: 20210318
  Transmission Date: 20210420
  Serious: Yes (Hospitalization, Other)
  Sender: FDA-Public Use
  Company Number: DK-TEVA-2021-DK-1890668

PATIENT
  Age: 6 Year
  Sex: Female

DRUGS (4)
  1. METHYLPREDNISOLONE. [Suspect]
     Active Substance: METHYLPREDNISOLONE
     Indication: PULMONARY FIBROSIS
     Route: 042
  2. SOLIFENACIN [Concomitant]
     Active Substance: SOLIFENACIN
     Indication: PROPHYLAXIS URINARY TRACT INFECTION
     Route: 065
  3. NITROFURANTOIN. [Suspect]
     Active Substance: NITROFURANTOIN
     Indication: PROPHYLAXIS URINARY TRACT INFECTION
     Dosage: 25 MILLIGRAM DAILY;
     Route: 048
  4. PREDNISOLONE. [Suspect]
     Active Substance: PREDNISOLONE
     Indication: PULMONARY FIBROSIS
     Dosage: 40 MG/KG DAILY;
     Route: 065

REACTIONS (3)
  - Pulmonary fibrosis [Recovered/Resolved]
  - Pneumocystis jirovecii infection [Recovered/Resolved]
  - Adrenal insufficiency [Unknown]
